FAERS Safety Report 6935996-7 (Version None)
Quarter: 2010Q3

REPORT INFORMATION
  Report Type: 
  Country: None (occurrence: None)
  Receive Date: 20100823
  Receipt Date: 20100805
  Transmission Date: 20110219
  Serious: Yes (Other)
  Sender: FDA-Public Use
  Company Number: US-BAYER-201026680NA

PATIENT
  Age: 38 Year
  Sex: Male
  Weight: 79 kg

DRUGS (13)
  1. MAGNEVIST [Suspect]
     Indication: ANGIOGRAM
     Dates: start: 20070725, end: 20070725
  2. OMNISCAN [Suspect]
     Indication: NUCLEAR MAGNETIC RESONANCE IMAGING
  3. MULTIHANCE [Suspect]
     Indication: ANGIOGRAM
  4. PROHANCE [Suspect]
     Indication: NUCLEAR MAGNETIC RESONANCE IMAGING
  5. OPTIMARK [Suspect]
     Indication: NUCLEAR MAGNETIC RESONANCE IMAGING
  6. UNKNOWN GBCA [Suspect]
     Indication: NUCLEAR MAGNETIC RESONANCE IMAGING BRAIN
     Route: 042
     Dates: start: 20061019, end: 20061019
  7. COUMADIN [Concomitant]
  8. LANTUS [Concomitant]
  9. LASIX [Concomitant]
  10. NOVOLOG MIX 70/30 [Concomitant]
  11. PHOSLO [Concomitant]
  12. HECTOROL [Concomitant]
  13. ^ESTROGEN^ [Concomitant]

REACTIONS (19)
  - ANHEDONIA [None]
  - ERYTHEMA [None]
  - JOINT CONTRACTURE [None]
  - JOINT RANGE OF MOTION DECREASED [None]
  - LIGAMENT DISORDER [None]
  - MUSCLE TIGHTNESS [None]
  - MUSCULOSKELETAL STIFFNESS [None]
  - MYALGIA [None]
  - NEPHROGENIC SYSTEMIC FIBROSIS [None]
  - OEDEMA PERIPHERAL [None]
  - PAIN [None]
  - PIGMENTATION DISORDER [None]
  - PURPURA [None]
  - RASH [None]
  - RASH MACULAR [None]
  - RASH PAPULAR [None]
  - SKIN HYPERTROPHY [None]
  - SKIN INDURATION [None]
  - SKIN TIGHTNESS [None]
